FAERS Safety Report 12573553 (Version 1)
Quarter: 2016Q3

REPORT INFORMATION
  Report Type: Spontaneous
  Country: US (occurrence: US)
  Receive Date: 20160720
  Receipt Date: 20160720
  Transmission Date: 20161109
  Serious: No
  Sender: FDA-Public Use
  Company Number: US-PFIZER INC-2016319721

PATIENT
  Age: 50 Year
  Sex: Male

DRUGS (4)
  1. FIORICET [Suspect]
     Active Substance: ACETAMINOPHEN\BUTALBITAL\CAFFEINE
     Indication: MIGRAINE
     Dosage: UNK
  2. ADVIL [Suspect]
     Active Substance: IBUPROFEN
     Indication: MIGRAINE
     Dosage: 200 MG, UNK
  3. ASPIRIN /00002701/ [Concomitant]
     Active Substance: ASPIRIN
     Indication: MIGRAINE
  4. SEROQUEL [Concomitant]
     Active Substance: QUETIAPINE FUMARATE
     Indication: BIPOLAR DISORDER
     Dosage: 600 MG, DAILY,TWO PILLS A DAY (600 MG) IN THE EVENING
     Dates: start: 20160624

REACTIONS (4)
  - Pain in jaw [Unknown]
  - Overdose [Unknown]
  - Dizziness [Unknown]
  - Somnolence [Unknown]
